FAERS Safety Report 8463552 (Version 5)
Quarter: 2016Q1

REPORT INFORMATION
  Report Type: Spontaneous
  Country: US (occurrence: US)
  Receive Date: 20120316
  Receipt Date: 20160308
  Transmission Date: 20160526
  Serious: Yes (Hospitalization, Disabling, Other)
  Sender: FDA-Public Use
  Company Number: US-MERCK-1203USA01856

PATIENT
  Sex: Female
  Weight: 68.93 kg

DRUGS (7)
  1. ALENDRONATE SODIUM. [Suspect]
     Active Substance: ALENDRONATE SODIUM
     Indication: OSTEOPOROSIS
  2. FOSAMAX [Suspect]
     Active Substance: ALENDRONATE SODIUM
     Indication: OSTEOPOROSIS
     Dosage: 70 MG, QW
     Route: 048
     Dates: start: 20020212, end: 200802
  3. ALENDRONATE SODIUM. [Suspect]
     Active Substance: ALENDRONATE SODIUM
     Indication: OSTEOPENIA
  4. ALENDRONATE SODIUM. [Suspect]
     Active Substance: ALENDRONATE SODIUM
     Indication: OSTEOPENIA
  5. ACTIVELLA [Concomitant]
     Active Substance: ESTRADIOL\NORETHINDRONE ACETATE
     Indication: PRODUCT USED FOR UNKNOWN INDICATION
     Dosage: UNK, UNKNOWN
     Route: 065
     Dates: start: 2000, end: 2005
  6. ALENDRONATE SODIUM. [Suspect]
     Active Substance: ALENDRONATE SODIUM
     Indication: OSTEOPOROSIS
     Dosage: 70 MG, QW
     Route: 048
     Dates: start: 20080220, end: 20100610
  7. FOSAMAX [Suspect]
     Active Substance: ALENDRONATE SODIUM
     Indication: OSTEOPENIA

REACTIONS (22)
  - Intramedullary rod insertion [Unknown]
  - Bone graft [Unknown]
  - Muscular weakness [Unknown]
  - Dental implantation [Unknown]
  - Femur fracture [Recovering/Resolving]
  - Urinary tract infection [Unknown]
  - Foot fracture [Unknown]
  - Scoliosis [Unknown]
  - Cognitive disorder [Unknown]
  - Foot fracture [Recovering/Resolving]
  - Osteoporosis [Not Recovered/Not Resolved]
  - Uterine disorder [Unknown]
  - Cervix disorder [Unknown]
  - Atrophic vulvovaginitis [Unknown]
  - Spinal compression fracture [Unknown]
  - Dizziness [Unknown]
  - Hyperglycaemia [Unknown]
  - Abnormal weight gain [Unknown]
  - Restless legs syndrome [Unknown]
  - Anaemia [Unknown]
  - Low turnover osteopathy [Not Recovered/Not Resolved]
  - Hypokalaemia [Unknown]

NARRATIVE: CASE EVENT DATE: 200203
